FAERS Safety Report 5683558-4 (Version None)
Quarter: 2008Q1

REPORT INFORMATION
  Report Type: 
  Country: None (occurrence: None)
  Receive Date: 20080326
  Receipt Date: 20070622
  Transmission Date: 20080703
  Serious: Yes (Death, Hospitalization)
  Sender: FDA-Public Use
  Company Number: 6034961

PATIENT
  Age: 85 Year
  Sex: Female

DRUGS (6)
  1. METFORMIN HCL [Suspect]
     Indication: TYPE 2 DIABETES MELLITUS
     Dosage: 500 MG (500 MG, 1 IN 1 D) ORAL
     Route: 048
  2. GLIBENCLAMIDE (500 MG, TABLET) (GLIBENCLAMIDE) [Concomitant]
  3. CARBIDOPA AND LEVODOPA [Concomitant]
  4. AMANTADINE HCL [Concomitant]
  5. CARBASALATE CALCIUM (CARBASALATE CALCIUM) [Concomitant]
  6. PERINDOPRIL [Concomitant]

REACTIONS (18)
  - AORTIC ANEURYSM RUPTURE [None]
  - BLOOD GLUCOSE INCREASED [None]
  - BLOOD PRESSURE INCREASED [None]
  - BLOOD UREA INCREASED [None]
  - DELIRIUM [None]
  - DYSPNOEA [None]
  - FALL [None]
  - GASTROINTESTINAL HYPOMOTILITY [None]
  - GLOMERULAR FILTRATION RATE DECREASED [None]
  - HAEMODIALYSIS [None]
  - HEART RATE INCREASED [None]
  - INTESTINAL ISCHAEMIA [None]
  - LACTIC ACIDOSIS [None]
  - ORAL INTAKE REDUCED [None]
  - PNEUMONIA [None]
  - POST PROCEDURAL COMPLICATION [None]
  - RENAL IMPAIRMENT [None]
  - UROSEPSIS [None]
